FAERS Safety Report 7938341-3 (Version None)
Quarter: 2011Q4

REPORT INFORMATION
  Report Type: 
  Country: None (occurrence: None)
  Receive Date: 20111123
  Receipt Date: 20111116
  Transmission Date: 20120403
  Serious: Yes (Hospitalization)
  Sender: FDA-Public Use
  Company Number: GB-GILEAD-2011-0047113

PATIENT
  Age: 35 Year
  Sex: Male

DRUGS (1)
  1. HEPSERA [Suspect]
     Indication: HEPATITIS B

REACTIONS (5)
  - BLOOD PHOSPHORUS DECREASED [None]
  - BONE DENSITY DECREASED [None]
  - BLOOD CREATININE INCREASED [None]
  - BONE PAIN [None]
  - ASTHENIA [None]
